FAERS Safety Report 5232075-4 (Version None)
Quarter: 2007Q1

REPORT INFORMATION
  Report Type: 
  Country: None (occurrence: None)
  Receive Date: 20061201
  Receipt Date: 20060825
  Transmission Date: 20070707
  Serious: No
  Sender: FDA-Public Use
  Company Number: US200608006637

PATIENT
  Age: 55 Year
  Sex: Female

DRUGS (2)
  1. CYMBALTA [Suspect]
     Dosage: 90 MG
     Dates: start: 20060201
  2. LORAZEPAM [Concomitant]

REACTIONS (1)
  - CARDIAC FLUTTER [None]
